FAERS Safety Report 6664302-0 (Version None)
Quarter: 2010Q2

REPORT INFORMATION
  Report Type: 
  Country: None (occurrence: None)
  Receive Date: 20100401
  Receipt Date: 20100323
  Transmission Date: 20101027
  Serious: Yes (Hospitalization)
  Sender: FDA-Public Use
  Company Number: US-ELI_LILLY_AND_COMPANY-US201003006366

PATIENT
  Age: 71 Year
  Sex: Female

DRUGS (14)
  1. ZYPREXA ZYDIS [Suspect]
     Indication: SCHIZOPHRENIA, PARANOID TYPE
     Dosage: 20 MG, DAILY (1/D)
  2. ZYPREXA [Suspect]
     Indication: SCHIZOPHRENIA, PARANOID TYPE
     Dosage: 10 MG, DAILY (1/D)
  3. ZYPREXA [Suspect]
     Dosage: 5 MG, DAILY (1/D)
  4. ZYPREXA [Suspect]
     Dosage: 10 MG, DAILY (1/D)
  5. ZYPREXA [Suspect]
     Dosage: 15 MG, DAILY (1/D)
  6. LOPRESSOR [Concomitant]
  7. OMEPRAZOLE [Concomitant]
  8. LIPITOR [Concomitant]
  9. WELLBUTRIN [Concomitant]
  10. TRICOR [Concomitant]
  11. CHOLESTYRAMINE [Concomitant]
  12. SYMBICORT [Concomitant]
  13. ASPIRIN [Concomitant]
  14. CALCIUM [Concomitant]

REACTIONS (4)
  - ANXIETY [None]
  - FALL [None]
  - SURGERY [None]
  - WEIGHT INCREASED [None]
